FAERS Safety Report 8207296-9 (Version None)
Quarter: 2012Q1

REPORT INFORMATION
  Report Type: 
  Country: None (occurrence: None)
  Receive Date: 20120314
  Receipt Date: 20120307
  Transmission Date: 20120608
  Serious: Yes (Other)
  Sender: FDA-Public Use
  Company Number: JP-SANOFI-AVENTIS-2012SA000766

PATIENT
  Age: 65 Year
  Sex: Male
  Weight: 52.8 kg

DRUGS (24)
  1. POLARAMINE [Concomitant]
     Route: 042
     Dates: start: 20110624, end: 20110624
  2. THEOLONG [Concomitant]
     Route: 042
  3. RED BLOOD CELLS, CONCENTRATED [Concomitant]
     Dosage: DOSE:2 UNIT(S)
     Route: 042
     Dates: start: 20110626, end: 20110627
  4. CYTARABINE [Concomitant]
     Dosage: FREQUENCY: 2 TIMES A DAYTREATMENT SCHEDULE: 1-21/1 WKS X 3
     Route: 042
     Dates: start: 20110623, end: 20110731
  5. ACLACINON [Concomitant]
     Dosage: FREQUENCY: 1 TIME A DAYTREATMENT SCHEDULE: 1-4 / 3WKS X3
     Route: 042
     Dates: start: 20110623, end: 20110731
  6. LASIX [Suspect]
     Route: 042
     Dates: start: 20110626, end: 20110626
  7. LASIX [Suspect]
     Route: 042
     Dates: start: 20110627, end: 20110627
  8. SOLU-CORTEF [Concomitant]
     Route: 042
     Dates: start: 20110626, end: 20110626
  9. POLARAMINE [Concomitant]
     Route: 042
     Dates: start: 20110626, end: 20110626
  10. LEVOFLOXACIN [Concomitant]
     Route: 048
     Dates: start: 20110623, end: 20110624
  11. PLATELETS [Concomitant]
     Dosage: DOSE:10 UNIT(S)
     Route: 042
  12. AMINOACETIC ACID/PROLINE [Concomitant]
     Route: 048
     Dates: start: 20110622, end: 20110628
  13. ALL OTHER THERAPEUTIC PRODUCTS [Concomitant]
     Indication: BACK PAIN
     Route: 048
  14. ITRACONAZOLE [Concomitant]
     Dosage: ITRIZOLE 1% SOLUTION 20ML DOSE:20 MILLIGRAM(S)/MILLILITRE
     Route: 048
     Dates: start: 20110623
  15. KYTRIL [Concomitant]
     Route: 042
     Dates: start: 20110623, end: 20110626
  16. LASIX [Suspect]
     Route: 042
     Dates: start: 20110623, end: 20110623
  17. LASIX [Suspect]
     Route: 042
     Dates: start: 20110626, end: 20110626
  18. SOLU-CORTEF [Concomitant]
     Route: 042
     Dates: start: 20110624, end: 20110624
  19. RED BLOOD CELLS, CONCENTRATED [Concomitant]
     Dosage: DOSE:2 UNIT(S)
     Route: 042
     Dates: end: 20110623
  20. ACLACINON [Concomitant]
     Route: 042
     Dates: end: 20110904
  21. LASIX [Suspect]
     Route: 042
     Dates: start: 20110624, end: 20110625
  22. RASURITEK INTRAVENOUS [Suspect]
     Route: 042
     Dates: start: 20110623, end: 20110627
  23. FLUTICASONE PROPIONATE [Concomitant]
  24. OMEPRAZOLE [Concomitant]
     Route: 042
     Dates: start: 20110603

REACTIONS (3)
  - PNEUMONIA [None]
  - OEDEMA [None]
  - BLOOD CALCIUM DECREASED [None]
